FAERS Safety Report 9656154 (Version 1)
Quarter: 2013Q4

REPORT INFORMATION
  Report Type: Spontaneous
  Country: US (occurrence: US)
  Receive Date: 20131030
  Receipt Date: 20131030
  Transmission Date: 20140711
  Serious: No
  Sender: FDA-Public Use
  Company Number: US-PFIZER INC-2013304942

PATIENT
  Sex: Male

DRUGS (2)
  1. ZITHROMAX [Suspect]
     Dosage: ON AND OFF (CYCLIC)
     Dates: start: 2009
  2. ZITHROMAX [Suspect]
     Dosage: 500 MG, 1X/DAY

REACTIONS (1)
  - Heart rate irregular [Not Recovered/Not Resolved]
